FAERS Safety Report 7377704-4 (Version None)
Quarter: 2011Q1

REPORT INFORMATION
  Report Type: 
  Country: None (occurrence: None)
  Receive Date: 20110303
  Receipt Date: 20110308
  Transmission Date: 20110831
  Serious: Yes (Disabling, Other)
  Sender: FDA-Public Use
  Company Number: ACO_22207_2011

PATIENT
  Age: 53 Year
  Sex: Male

DRUGS (2)
  1. AMPYRA [Suspect]
     Indication: PRODUCT USED FOR UNKNOWN INDICATION
  2. AVONEX [Concomitant]

REACTIONS (3)
  - DIPLEGIA [None]
  - BLINDNESS [None]
  - GENERAL PHYSICAL HEALTH DETERIORATION [None]
